FAERS Safety Report 8572291-7 (Version None)
Quarter: 2012Q2

REPORT INFORMATION
  Report Type: 
  Country: None (occurrence: None)
  Receive Date: 20120418
  Receipt Date: 20090824
  Transmission Date: 20120825
  Serious: Yes (Other)
  Sender: FDA-Public Use
  Company Number: PHEH2009US09887

PATIENT
  Age: 93 Year
  Sex: Female

DRUGS (1)
  1. DIOVAN HCT [Suspect]

REACTIONS (6)
  - HALLUCINATION [None]
  - BLOOD SODIUM DECREASED [None]
  - DIZZINESS [None]
  - INSOMNIA [None]
  - CONFUSIONAL STATE [None]
  - NERVOUSNESS [None]
